FAERS Safety Report 14895455 (Version 1)
Quarter: 2018Q2

REPORT INFORMATION
  Report Type: Spontaneous
  Country: US (occurrence: US)
  Receive Date: 20180515
  Receipt Date: 20180515
  Transmission Date: 20180711
  Serious: Yes (Other)
  Sender: FDA-Public Use
  Company Number: US-STRIDES ARCOLAB LIMITED-2017SP011269

PATIENT

DRUGS (22)
  1. RUXOLITINIB [Concomitant]
     Active Substance: RUXOLITINIB
     Indication: GRAFT VERSUS HOST DISEASE
     Dosage: 5 MG, BID
     Route: 065
  2. LINEZOLID. [Concomitant]
     Active Substance: LINEZOLID
     Indication: ANTIBIOTIC PROPHYLAXIS
     Route: 065
  3. MEROPENEM. [Concomitant]
     Active Substance: MEROPENEM
     Indication: ANTIBIOTIC PROPHYLAXIS
     Route: 065
  4. MONTELUKAST [Concomitant]
     Active Substance: MONTELUKAST SODIUM
     Indication: CHRONIC SINUSITIS
     Dosage: UNK, UNKNOWN
  5. ATOVAQUONE. [Concomitant]
     Active Substance: ATOVAQUONE
     Indication: PROPHYLAXIS
     Route: 065
  6. IDARUBICIN [Concomitant]
     Active Substance: IDARUBICIN
     Indication: ACUTE MYELOID LEUKAEMIA
     Dosage: UNK, UNKNOWN
     Route: 065
  7. VALACYCLOVIR [Concomitant]
     Active Substance: VALACYCLOVIR HYDROCHLORIDE
     Indication: ANTIBIOTIC PROPHYLAXIS
     Route: 065
  8. VORICONAZOLE. [Concomitant]
     Active Substance: VORICONAZOLE
     Indication: ANTIBIOTIC PROPHYLAXIS
     Route: 065
  9. PENTAMIDINE [Concomitant]
     Active Substance: PENTAMIDINE
     Indication: DRUG HYPERSENSITIVITY
     Dosage: EVERY FOUR WEEKS
  10. AMIKACIN. [Concomitant]
     Active Substance: AMIKACIN
     Indication: ANTIBIOTIC THERAPY
     Route: 065
  11. CEFTRIAXONE. [Concomitant]
     Active Substance: CEFTRIAXONE
     Indication: NOCARDIOSIS
     Route: 065
  12. CYTARABINE. [Concomitant]
     Active Substance: CYTARABINE
     Indication: ACUTE MYELOID LEUKAEMIA
     Dosage: UNK, UNKNOWN
     Route: 065
  13. COTRIMOXAZOLE [Concomitant]
     Active Substance: SULFAMETHOXAZOLE\TRIMETHOPRIM
     Indication: NOCARDIOSIS
     Route: 065
  14. AZITHROMYCIN ANHYDROUS. [Concomitant]
     Active Substance: AZITHROMYCIN ANHYDROUS
     Indication: PROPHYLAXIS
     Route: 065
  15. AMOXICILLIN. [Concomitant]
     Active Substance: AMOXICILLIN
     Indication: PRODUCT USED FOR UNKNOWN INDICATION
     Route: 065
  16. VANCOMYCIN [Suspect]
     Active Substance: VANCOMYCIN
     Indication: PRODUCT USED FOR UNKNOWN INDICATION
     Dosage: UNK
     Route: 065
  17. DEXAMETHASONE. [Concomitant]
     Active Substance: DEXAMETHASONE
     Indication: GRAFT VERSUS HOST DISEASE
     Dosage: 6 MG DAILY
     Route: 065
  18. POSACONAZOLE [Concomitant]
     Active Substance: POSACONAZOLE
     Indication: PROPHYLAXIS
     Route: 065
  19. SIROLIMUS. [Concomitant]
     Active Substance: SIROLIMUS
     Indication: ACUTE MYELOID LEUKAEMIA
     Route: 065
  20. PENICILLIN VK [Concomitant]
     Active Substance: PENICILLIN V POTASSIUM
     Indication: ANTIBIOTIC PROPHYLAXIS
     Route: 065
  21. BUDESONIDE. [Concomitant]
     Active Substance: BUDESONIDE
     Indication: CHRONIC SINUSITIS
  22. IMIPENEM [Concomitant]
     Active Substance: IMIPENEM
     Indication: NOCARDIOSIS
     Route: 065

REACTIONS (1)
  - Acute kidney injury [Unknown]
